FAERS Safety Report 5267169-0 (Version None)
Quarter: 2007Q1

REPORT INFORMATION
  Report Type: 
  Country: None (occurrence: None)
  Receive Date: 20070302
  Receipt Date: 20070221
  Transmission Date: 20070707
  Serious: Yes (Hospitalization, Other)
  Sender: FDA-Public Use
  Company Number: GXKR2007US01914

PATIENT
  Age: 61 Year
  Sex: Female

DRUGS (6)
  1. ISONIAZID [Suspect]
     Indication: ANTIBIOTIC PROPHYLAXIS
     Dosage: 150 MG, QD
  2. DIPHENHYDRAMINE HCL [Concomitant]
  3. METRONIDAZOLE [Concomitant]
  4. CEFTRIAXONE [Concomitant]
  5. POTASSIUM CHLORIDE [Concomitant]
  6. MAGNESIUM SULFATE [Concomitant]

REACTIONS (8)
  - ABDOMINAL PAIN [None]
  - APPENDICECTOMY [None]
  - FEAR [None]
  - HALLUCINATION, TACTILE [None]
  - HALLUCINATIONS, MIXED [None]
  - PSYCHOTIC DISORDER [None]
  - SMALL INTESTINAL RESECTION [None]
  - THYROXINE INCREASED [None]
